FAERS Safety Report 6453447-6 (Version None)
Quarter: 2009Q4

REPORT INFORMATION
  Report Type: 
  Country: None (occurrence: None)
  Receive Date: 20091124
  Receipt Date: 20091111
  Transmission Date: 20100525
  Serious: Yes (Hospitalization)
  Sender: FDA-Public Use
  Company Number: NL-CELGENEUS-114-CTHAL-09110747

PATIENT
  Sex: Male
  Weight: 80 kg

DRUGS (12)
  1. THALIDOMIDE [Suspect]
     Indication: MULTIPLE MYELOMA
     Route: 048
     Dates: start: 20090526, end: 20091108
  2. MELPHALAN [Suspect]
     Indication: MULTIPLE MYELOMA
     Route: 048
     Dates: start: 20090526, end: 20091016
  3. PREDNISONE [Suspect]
     Indication: MULTIPLE MYELOMA
     Route: 048
     Dates: start: 20090526, end: 20091016
  4. ALKERAN [Concomitant]
     Indication: MULTIPLE MYELOMA
     Route: 048
     Dates: end: 20091109
  5. ACENOCOUMAROL [Concomitant]
     Indication: ATRIAL FIBRILLATION
     Route: 048
     Dates: end: 20091108
  6. METOPROLOL [Concomitant]
     Indication: HYPERTENSION
     Route: 048
     Dates: end: 20091109
  7. MICARDIS [Concomitant]
     Indication: HYPERTENSION
     Route: 048
     Dates: end: 20091109
  8. CRESTOR [Concomitant]
     Indication: HYPERCHOLESTEROLAEMIA
     Route: 048
     Dates: end: 20091109
  9. ALFUZOSIN HCL [Concomitant]
     Route: 048
     Dates: end: 20091109
  10. OMEPRAZOLE [Concomitant]
     Route: 048
     Dates: end: 20091109
  11. MOVICOLON [Concomitant]
     Route: 048
     Dates: end: 20091109
  12. BONEFOS [Concomitant]
     Indication: HYPERCALCAEMIA
     Route: 048
     Dates: end: 20091109

REACTIONS (1)
  - VENTRICULAR FIBRILLATION [None]
